FAERS Safety Report 25437231 (Version 1)
Quarter: 2025Q2

REPORT INFORMATION
  Report Type: Spontaneous
  Country: FR (occurrence: FR)
  Receive Date: 20250616
  Receipt Date: 20250616
  Transmission Date: 20250716
  Serious: Yes (Death, Other)
  Sender: BRISTOL-MYERS SQUIBB COMPANY
  Company Number: FR-BRISTOL-MYERS SQUIBB COMPANY-2025-084053

PATIENT
  Age: 60 Year
  Sex: Male
  Weight: 75 kg

DRUGS (2)
  1. OPDIVO [Suspect]
     Active Substance: NIVOLUMAB
     Indication: Pleural mesothelioma malignant
     Dosage: 2 DOSES RECEIVED BEFORE DISCONTINUATION
     Route: 042
     Dates: start: 20230605, end: 20230619
  2. YERVOY [Suspect]
     Active Substance: IPILIMUMAB
     Indication: Pleural mesothelioma malignant
     Dosage: 1 DOSE RECEIVED BEFORE DISCONTINUATION
     Route: 042
     Dates: start: 20230605, end: 20230619

REACTIONS (1)
  - Death [Fatal]

NARRATIVE: CASE EVENT DATE: 20230627
